FAERS Safety Report 5089807-8 (Version None)
Quarter: 2006Q3

REPORT INFORMATION
  Report Type: 
  Country: None (occurrence: None)
  Receive Date: 20060828
  Receipt Date: 20060707
  Transmission Date: 20061208
  Serious: Yes (Other)
  Sender: FDA-Public Use
  Company Number: PHRM2006FR02067

PATIENT
  Age: 68 Year
  Sex: Female
  Weight: 68 kg

DRUGS (3)
  1. LAMISIL [Suspect]
     Indication: NAIL TINEA
     Dosage: 250 MG, QD
     Route: 048
     Dates: start: 20050401, end: 20050527
  2. GINKOR FORT [Concomitant]
     Dosage: 2 DF, QD
     Route: 048
     Dates: start: 20050401
  3. DOLIPRANE [Concomitant]
     Route: 048

REACTIONS (3)
  - ERYTHEMA NODOSUM [None]
  - PIGMENTATION DISORDER [None]
  - SKIN INDURATION [None]
